FAERS Safety Report 5349015-X (Version None)
Quarter: 2007Q2

REPORT INFORMATION
  Report Type: 
  Country: None (occurrence: None)
  Receive Date: 20070516
  Receipt Date: 20070326
  Transmission Date: 20071010
  Serious: Yes (Other)
  Sender: FDA-Public Use
  Company Number: 200712079US

PATIENT
  Age: 34 Year
  Sex: Male

DRUGS (5)
  1. APIDRA [Suspect]
     Indication: DIABETES MELLITUS
     Dates: start: 20060101
  2. TOLTERODINE L-TARTRATE (DETROL LA) [Concomitant]
  3. ESCITALOPORAM OXALATE (LEXAPRO) [Concomitant]
  4. NEURONTIN [Concomitant]
  5. GLUCOSE, ALBUMIN HUMAN, INTERFERON BETA (BETASERON /01229701/) [Concomitant]

REACTIONS (2)
  - DRUG INEFFECTIVE [None]
  - HYPERGLYCAEMIA [None]
